FAERS Safety Report 18974998 (Version 1)
Quarter: 2021Q1

REPORT INFORMATION
  Report Type: Spontaneous
  Country: PL (occurrence: PL)
  Receive Date: 20210305
  Receipt Date: 20210305
  Transmission Date: 20210420
  Serious: Yes (Life-Threatening, Hospitalization)
  Sender: FDA-Public Use
  Company Number: PL-TEVA-2021-PL-1886538

PATIENT
  Age: 90 Year
  Sex: Female
  Weight: 45 kg

DRUGS (2)
  1. DICLORATIO (75 MG + 20 MG)/2 ML [Suspect]
     Active Substance: DICLOFENAC SODIUM\LIDOCAINE HYDROCHLORIDE
     Indication: ANALGESIC THERAPY
     Route: 030
     Dates: start: 20170904, end: 20170908
  2. ACENOCUMAROL [Concomitant]
     Active Substance: ACENOCOUMAROL
     Indication: ANTICOAGULANT THERAPY
     Dosage: 1MILLIGRAM
     Route: 048
     Dates: start: 2009, end: 20170909

REACTIONS (10)
  - Faeces discoloured [Recovering/Resolving]
  - Gastrointestinal haemorrhage [Recovering/Resolving]
  - Blood pressure decreased [Recovering/Resolving]
  - Haematemesis [Recovering/Resolving]
  - Somnolence [Recovering/Resolving]
  - Depressed level of consciousness [Recovering/Resolving]
  - Abdominal pain [Recovering/Resolving]
  - Nausea [Recovering/Resolving]
  - Melaena [Recovering/Resolving]
  - Gait inability [Recovering/Resolving]
